FAERS Safety Report 4512065-7 (Version None)
Quarter: 2004Q4

REPORT INFORMATION
  Report Type: 
  Country: None (occurrence: None)
  Receive Date: 20041123
  Receipt Date: 20041110
  Transmission Date: 20050328
  Serious: Yes (Hospitalization)
  Sender: FDA-Public Use
  Company Number: 2004231233USA

PATIENT
  Age: 48 Year
  Sex: Male
  Weight: 85 kg

DRUGS (6)
  1. IRINOTECAN HYDROCHLORIDE SOLUTION, STERILE (IRINOTECAN HYDROCHLORIDE) [Suspect]
     Indication: ASTROCYTOMA
     Dosage: 154 MG (WEEKLY X 4 WEEKS, CYCLE  6) INTRAVENOUS
     Route: 042
     Dates: start: 20031216, end: 20040804
  2. THALIDOMIE (THALIDOMIDE) [Suspect]
     Indication: ASTROCYTOMA
     Dosage: 400 MG (1 D), ORAL
     Route: 048
     Dates: start: 20031216
  3. LEVETIRACETAM [Concomitant]
  4. VALPROATE SODIUM [Concomitant]
  5. FAMOTIDINE [Concomitant]
  6. WARFARIN SODIUM [Concomitant]

REACTIONS (2)
  - CONVULSION [None]
  - DEPRESSED LEVEL OF CONSCIOUSNESS [None]
